FAERS Safety Report 14822084 (Version 2)
Quarter: 2018Q2

REPORT INFORMATION
  Report Type: Report from Study
  Country: None (occurrence: US)
  Receive Date: 20180427
  Receipt Date: 20180503
  Transmission Date: 20180711
  Serious: Yes (Disabling)
  Sender: FDA-Public Use
  Company Number: US-BAUSCH-BL-2018-012346

PATIENT
  Age: 34 Year
  Sex: Female
  Weight: 69.01 kg

DRUGS (1)
  1. XIFAXAN [Suspect]
     Active Substance: RIFAXIMIN
     Indication: AMMONIA INCREASED
     Route: 048
     Dates: start: 2016, end: 20180422

REACTIONS (4)
  - Speech disorder [Unknown]
  - Off label use [Recovered/Resolved]
  - Drug dose omission [Not Recovered/Not Resolved]
  - Intellectual disability [Not Recovered/Not Resolved]

NARRATIVE: CASE EVENT DATE: 2016
